FAERS Safety Report 5082144-7 (Version None)
Quarter: 2006Q3

REPORT INFORMATION
  Report Type: 
  Country: None (occurrence: None)
  Receive Date: 20060817
  Receipt Date: 20060814
  Transmission Date: 20061208
  Serious: Yes (Death)
  Sender: FDA-Public Use
  Company Number: 2006UW16141

PATIENT
  Sex: Female
  Weight: 81.6 kg

DRUGS (2)
  1. NEXIUM [Suspect]
     Route: 048
     Dates: start: 20060728
  2. DOXYCYCLINE [Suspect]
     Dates: start: 20060728

REACTIONS (1)
  - DEATH [None]
